FAERS Safety Report 20489535 (Version 2)
Quarter: 2022Q1

REPORT INFORMATION
  Report Type: Spontaneous
  Country: JP (occurrence: JP)
  Receive Date: 20220218
  Receipt Date: 20220221
  Transmission Date: 20220423
  Serious: Yes (Other)
  Sender: FDA-Public Use
  Company Number: JP-PFIZER INC-202200215405

PATIENT

DRUGS (3)
  1. INLYTA [Suspect]
     Active Substance: AXITINIB
     Dosage: 10 MG, DAILY
     Route: 048
     Dates: start: 202109
  2. INLYTA [Suspect]
     Active Substance: AXITINIB
     Dosage: 6 MG, DAILY
     Route: 048
  3. BAVENCIO [Suspect]
     Active Substance: AVELUMAB
     Dosage: UNK (ONCE EVERY 2 WEEKS)
     Route: 041
     Dates: start: 202109

REACTIONS (11)
  - Hypothyroidism [Unknown]
  - Dermatitis exfoliative [Unknown]
  - Palmar-plantar erythrodysaesthesia syndrome [Unknown]
  - Epistaxis [Recovered/Resolved]
  - Stomatitis [Unknown]
  - Constipation [Unknown]
  - Blood pressure increased [Recovering/Resolving]
  - Dysphonia [Unknown]
  - Weight decreased [Unknown]
  - Dry mouth [Unknown]
  - Liver function test increased [Recovered/Resolved]
